FAERS Safety Report 9448499 (Version 1)
Quarter: 2013Q3

REPORT INFORMATION
  Report Type: Spontaneous
  Country: US (occurrence: US)
  Receive Date: 20130808
  Receipt Date: 20130808
  Transmission Date: 20140515
  Serious: Yes (Disabling)
  Sender: FDA-Public Use
  Company Number: US-JNJFOC-20130711363

PATIENT
  Age: 21 Year
  Sex: Female

DRUGS (8)
  1. RISPERIDONE [Suspect]
     Indication: DERMATILLOMANIA
     Route: 048
     Dates: start: 20130513, end: 20130715
  2. RISPERIDONE [Suspect]
     Indication: DERMATILLOMANIA
     Route: 048
     Dates: start: 2013, end: 2013
  3. RISPERIDONE [Suspect]
     Indication: DERMATILLOMANIA
     Route: 048
     Dates: start: 2013, end: 2013
  4. RISPERIDONE [Suspect]
     Indication: TRICHOTILLOMANIA
     Route: 048
     Dates: start: 2013, end: 2013
  5. RISPERIDONE [Suspect]
     Indication: TRICHOTILLOMANIA
     Route: 048
     Dates: start: 2013, end: 2013
  6. RISPERIDONE [Suspect]
     Indication: TRICHOTILLOMANIA
     Route: 048
     Dates: start: 20130513, end: 20130715
  7. PAXIL [Concomitant]
     Indication: DERMATILLOMANIA
     Route: 048
     Dates: start: 20111013
  8. PAXIL [Concomitant]
     Indication: TRICHOTILLOMANIA
     Route: 048
     Dates: start: 20111013

REACTIONS (4)
  - Urinary incontinence [Recovering/Resolving]
  - Trichotillomania [Not Recovered/Not Resolved]
  - Dermatillomania [Recovering/Resolving]
  - Off label use [Unknown]
